FAERS Safety Report 13987745 (Version 1)
Quarter: 2017Q3

REPORT INFORMATION
  Report Type: Spontaneous
  Country: FR (occurrence: FR)
  Receive Date: 20170919
  Receipt Date: 20170919
  Transmission Date: 20171128
  Serious: Yes (Hospitalization)
  Sender: FDA-Public Use
  Company Number: FR-PURDUE PHARMA-GBR-2017-0048964

PATIENT

DRUGS (9)
  1. OXYNORM [Suspect]
     Active Substance: OXYCODONE HYDROCHLORIDE
     Dosage: 40 MG, DAILY
     Route: 048
  2. COUMADINE [Concomitant]
     Active Substance: WARFARIN SODIUM
  3. FORLAX                             /00754501/ [Concomitant]
     Active Substance: POLYETHYLENE GLYCOL 4000
  4. ATARAX [Concomitant]
     Active Substance: HYDROXYZINE HYDROCHLORIDE
  5. OXYNORM [Suspect]
     Active Substance: OXYCODONE HYDROCHLORIDE
     Indication: PAIN
     Dosage: 70 MG, DAILY
     Route: 048
  6. DAFALGAN [Concomitant]
     Active Substance: ACETAMINOPHEN
  7. MIANSERINE [Concomitant]
     Active Substance: MIANSERIN HYDROCHLORIDE
  8. EUPANTOL [Concomitant]
     Active Substance: PANTOPRAZOLE SODIUM
  9. SERESTA [Concomitant]
     Active Substance: OXAZEPAM

REACTIONS (6)
  - Drug abuse [Recovered/Resolved]
  - Acute kidney injury [Unknown]
  - Hypotension [Recovered/Resolved]
  - Hypokalaemia [Unknown]
  - Bradypnoea [Recovered/Resolved]
  - Somnolence [Recovered/Resolved]

NARRATIVE: CASE EVENT DATE: 20170326
